FAERS Safety Report 9940318 (Version 1)
Quarter: 2014Q1

REPORT INFORMATION
  Report Type: Spontaneous
  Country: TW (occurrence: TW)
  Receive Date: 20140303
  Receipt Date: 20140303
  Transmission Date: 20141002
  Serious: Yes (Death)
  Sender: FDA-Public Use
  Company Number: TW-BAXTER-2014BAX010126

PATIENT
  Sex: Male

DRUGS (1)
  1. DIANEAL PD-2, PERITONEAL DIALYSIS SOLUTION WITH 1.5% DEXTROSE ^BAXTER^ [Suspect]
     Indication: PERITONEAL DIALYSIS
     Route: 033
     Dates: end: 20140210

REACTIONS (1)
  - Acute myocardial infarction [Fatal]
